FAERS Safety Report 15172237 (Version 3)
Quarter: 2018Q3

REPORT INFORMATION
  Report Type: Report from Study
  Country: FR (occurrence: FR)
  Receive Date: 20180720
  Receipt Date: 20180825
  Transmission Date: 20181010
  Serious: Yes (Other)
  Sender: FDA-Public Use
  Company Number: FR-BRISTOL-MYERS SQUIBB COMPANY-BMS-2018-067232

PATIENT
  Age: 74 Year
  Sex: Male
  Weight: 62 kg

DRUGS (17)
  1. NIVOLUMAB [Suspect]
     Active Substance: NIVOLUMAB
     Indication: SQUAMOUS CELL CARCINOMA OF HEAD AND NECK
     Dosage: 175.5 MG, UNK
     Route: 042
     Dates: start: 20171103, end: 20180629
  2. LEVOTHYROX [Concomitant]
     Active Substance: LEVOTHYROXINE
     Indication: HYPOTHYROIDISM
     Dosage: UNK
     Route: 065
     Dates: start: 20180420, end: 20180702
  3. DAFALGAN [Concomitant]
     Active Substance: ACETAMINOPHEN
     Indication: ARTHRALGIA
     Route: 065
  4. DULCOLAX (BISACODYL) [Concomitant]
     Active Substance: BISACODYL
     Indication: CONSTIPATION
     Dosage: UNK
     Route: 065
     Dates: start: 20180713
  5. ESOMEPRAZOLE [Concomitant]
     Active Substance: ESOMEPRAZOLE
     Indication: GASTROOESOPHAGEAL REFLUX DISEASE
     Dosage: UNK
     Route: 065
     Dates: start: 20180309
  6. DEXERYL                            /01579901/ [Concomitant]
     Active Substance: GLYCERIN\MINERAL OIL\PETROLATUM
     Indication: PRURITUS
     Dosage: UNK
     Route: 065
     Dates: start: 20180403
  7. DAFALGAN [Concomitant]
     Active Substance: ACETAMINOPHEN
     Indication: DYSPHAGIA
     Route: 065
  8. NORMACOL LAVAMENT [Concomitant]
     Indication: CONSTIPATION
     Dosage: UNK
     Route: 065
     Dates: start: 20180701
  9. PRIMPERAN [Concomitant]
     Active Substance: METOCLOPRAMIDE HYDROCHLORIDE
     Indication: PROPHYLAXIS OF NAUSEA AND VOMITING
     Dosage: UNK
     Route: 065
     Dates: start: 20180713
  10. DUROGESIC [Concomitant]
     Active Substance: FENTANYL
     Indication: ARTHRALGIA
     Route: 065
  11. KETOPROFENE                        /00321701/ [Concomitant]
     Active Substance: KETOPROFEN
     Indication: MYALGIA
     Dosage: UNK
     Route: 065
     Dates: start: 20180316
  12. DACUDOSES [Concomitant]
     Active Substance: BORIC ACID\SODIUM BORATE
     Indication: XEROSIS
     Dosage: UNK
     Route: 065
     Dates: start: 20180209
  13. ATURGYL                            /00070002/ [Concomitant]
     Indication: NASAL CONGESTION
     Dosage: UNK
     Route: 065
     Dates: start: 20180420
  14. PHYSIOMER [Concomitant]
     Indication: NASAL CONGESTION
     Dosage: UNK
     Route: 065
     Dates: start: 20180224
  15. DUROGESIC [Concomitant]
     Active Substance: FENTANYL
     Indication: MYALGIA
     Dosage: UNK
     Route: 065
     Dates: start: 20180612
  16. DUROGESIC [Concomitant]
     Active Substance: FENTANYL
     Indication: DYSPHAGIA
     Route: 065
  17. DAFALGAN [Concomitant]
     Active Substance: ACETAMINOPHEN
     Indication: MYALGIA
     Dosage: UNK
     Route: 065
     Dates: start: 20180612

REACTIONS (2)
  - Hypothyroidism [Recovered/Resolved]
  - Hyponatraemia [Recovered/Resolved]

NARRATIVE: CASE EVENT DATE: 20180713
